FAERS Safety Report 21498604 (Version 1)
Quarter: 2022Q4

REPORT INFORMATION
  Report Type: Report from Study
  Country: US (occurrence: US)
  Receive Date: 20221024
  Receipt Date: 20221024
  Transmission Date: 20230113
  Serious: Yes (Other)
  Sender: FDA-Public Use
  Company Number: US-PFIZER INC-202200550431

PATIENT
  Sex: Female

DRUGS (3)
  1. LYRICA [Suspect]
     Active Substance: PREGABALIN
     Indication: Fibromyalgia
     Dosage: 75 MG, 2X/DAY
     Route: 048
  2. LYRICA [Suspect]
     Active Substance: PREGABALIN
     Indication: Neuropathy peripheral
     Dosage: UNK, 3X/DAY
     Route: 065
  3. LYRICA [Suspect]
     Active Substance: PREGABALIN
     Dosage: UNK
     Route: 065

REACTIONS (8)
  - Sudden onset of sleep [Unknown]
  - Insomnia [Unknown]
  - Confusional state [Unknown]
  - Fatigue [Unknown]
  - Irritability [Unknown]
  - Pain [Unknown]
  - Product prescribing issue [Unknown]
  - Therapeutic product effect incomplete [Unknown]
